FAERS Safety Report 18882219 (Version 1)
Quarter: 2021Q1

REPORT INFORMATION
  Report Type: Spontaneous
  Country: DE (occurrence: DE)
  Receive Date: 20210212
  Receipt Date: 20210212
  Transmission Date: 20210420
  Serious: Yes (Congenital Anomaly, Other)
  Sender: FDA-Public Use
  Company Number: DE-SUN PHARMACEUTICAL INDUSTRIES LTD-2021RR-280520

PATIENT
  Age: 1 Day
  Sex: Male
  Weight: 2.96 kg

DRUGS (8)
  1. NASENSPRAY RATIOPHARM KINDER [Concomitant]
     Indication: RHINITIS
     Dosage: UNK
     Route: 064
  2. L?THYROXIN [Concomitant]
     Active Substance: LEVOTHYROXINE SODIUM
     Indication: HYPOTHYROIDISM
     Dosage: 50 MICROGRAM, DAILY
     Route: 064
     Dates: start: 20190611, end: 20200309
  3. PRESINOL [Concomitant]
     Active Substance: METHYLDOPA
     Indication: GESTATIONAL HYPERTENSION
     Dosage: 500 [MG/D (BIS 250) ] ()
     Route: 064
  4. MCP [Concomitant]
     Active Substance: METOCLOPRAMIDE HYDROCHLORIDE
     Indication: DYSPEPSIA
     Dosage: 10 [MG/D (BEI BEDARF) ] () ; AS NECESSARY
     Route: 064
  5. PARACETAMOL [Concomitant]
     Active Substance: ACETAMINOPHEN
     Indication: BACK PAIN
     Dosage: 1000 [MG/D (BIS 500, BEI BEDARF) ]/ IF REQUIRED, NO DETAILS ()
     Route: 064
  6. CITALOPRAM [Suspect]
     Active Substance: CITALOPRAM HYDROBROMIDE
     Indication: ANXIETY DISORDER
     Dosage: 30 [MG/D ]
     Route: 064
     Dates: start: 20190611, end: 20200309
  7. GAVISCON ADVANCE [Suspect]
     Active Substance: POTASSIUM BICARBONATE\SODIUM ALGINATE
     Indication: DYSPEPSIA
     Dosage: UNK
     Route: 064
  8. VITAMIN B?KOMPLEX HEIDELBERGER CHLORELLA [Concomitant]
     Indication: HYPOVITAMINOSIS
     Dosage: RECOMMENDED BY NON?MEDICAL PRACTIIONER (^HEILPRAKTIKER^) ()
     Route: 064
     Dates: start: 20190611, end: 20200309

REACTIONS (5)
  - Congenital nasal septum deviation [Unknown]
  - Lenticulostriatal vasculopathy [Unknown]
  - Eyelid ptosis congenital [Unknown]
  - Respiratory disorder neonatal [Recovered/Resolved]
  - Foetal exposure during pregnancy [Unknown]

NARRATIVE: CASE EVENT DATE: 20200309
